FAERS Safety Report 10749313 (Version 1)
Quarter: 2015Q1

REPORT INFORMATION
  Report Type: Spontaneous
  Country: US (occurrence: None)
  Receive Date: 20150128
  Receipt Date: 20150128
  Transmission Date: 20150721
  Serious: No
  Sender: FDA-Public Use
  Company Number: None

PATIENT
  Age: 53 Year
  Sex: Female

DRUGS (19)
  1. AMPYRA [Concomitant]
     Active Substance: DALFAMPRIDINE
  2. TYSABRI [Concomitant]
     Active Substance: NATALIZUMAB
  3. MODAFINIL. [Concomitant]
     Active Substance: MODAFINIL
  4. OXYBUTYNIN [Concomitant]
     Active Substance: OXYBUTYNIN
  5. VITAMIN D [Concomitant]
     Active Substance: CHOLECALCIFEROL
  6. ESTRADIOL. [Concomitant]
     Active Substance: ESTRADIOL
  7. RISPERIDONE. [Concomitant]
     Active Substance: RISPERIDONE
  8. CITALOPRAM [Concomitant]
     Active Substance: CITALOPRAM HYDROBROMIDE
  9. MEDROXYPROGESTERONE [Concomitant]
     Active Substance: MEDROXYPROGESTERONE
  10. NAPROXEN. [Concomitant]
     Active Substance: NAPROXEN
  11. SENNA-GEN [Concomitant]
  12. DULOXETINE [Concomitant]
     Active Substance: DULOXETINE
  13. BOTOX [Concomitant]
     Active Substance: ONABOTULINUMTOXINA
  14. BACLOFEN. [Concomitant]
     Active Substance: BACLOFEN
  15. AMPYRA [Suspect]
     Active Substance: DALFAMPRIDINE
     Indication: MULTIPLE SCLEROSIS
     Route: 048
     Dates: start: 201105
  16. MIRALAX [Concomitant]
     Active Substance: POLYETHYLENE GLYCOL 3350
  17. CLONAZEPAM. [Concomitant]
     Active Substance: CLONAZEPAM
  18. MELOXICAM. [Concomitant]
     Active Substance: MELOXICAM
  19. VITAMIN B12 [Concomitant]
     Active Substance: CYANOCOBALAMIN

REACTIONS (3)
  - Urinary tract infection [None]
  - Asthenia [None]
  - Multiple sclerosis [None]

NARRATIVE: CASE EVENT DATE: 20140422
